FAERS Safety Report 5119707-6 (Version None)
Quarter: 2006Q4

REPORT INFORMATION
  Report Type: 
  Country: None (occurrence: None)
  Receive Date: 20061003
  Receipt Date: 20060906
  Transmission Date: 20070319
  Serious: Yes (Other)
  Sender: FDA-Public Use
  Company Number: US-MERCK-0609USA01034

PATIENT
  Age: 89 Year
  Sex: Female

DRUGS (2)
  1. TIMOPTIC [Suspect]
     Indication: GLAUCOMA
     Route: 047
     Dates: start: 19800101, end: 19900101
  2. TIMOPTIC [Suspect]
     Route: 047
     Dates: start: 19900101, end: 20060101

REACTIONS (4)
  - ASTHENOPIA [None]
  - EYE INFECTION [None]
  - EYE IRRITATION [None]
  - PARALYSIS [None]
